FAERS Safety Report 5377908-6 (Version None)
Quarter: 2007Q2

REPORT INFORMATION
  Report Type: 
  Country: None (occurrence: None)
  Receive Date: 20070629
  Receipt Date: 20070621
  Transmission Date: 20071010
  Serious: Yes (Hospitalization)
  Sender: FDA-Public Use
  Company Number: 2007BI007992

PATIENT
  Age: 46 Year
  Sex: Female

DRUGS (8)
  1. NATALIZUMAB [Suspect]
     Indication: MULTIPLE SCLEROSIS
     Dosage: 300 MG;QM;IV
     Route: 042
     Dates: start: 20061226, end: 20070131
  2. ZOLOFT [Concomitant]
  3. DIAZEPAM [Concomitant]
  4. NAPROSYN [Concomitant]
  5. ACCUPRIL [Concomitant]
  6. VITAMIN E [Concomitant]
  7. VITAMIN D [Concomitant]
  8. FISH OIL [Concomitant]

REACTIONS (2)
  - ABNORMAL BEHAVIOUR [None]
  - ANXIETY [None]
